FAERS Safety Report 8583510-5 (Version None)
Quarter: 2012Q3

REPORT INFORMATION
  Report Type: 
  Country: None (occurrence: None)
  Receive Date: 20120809
  Receipt Date: 20120731
  Transmission Date: 20120928
  Serious: Yes (Hospitalization)
  Sender: FDA-Public Use
  Company Number: US-RB-043076-12

PATIENT
  Age: 28 Year
  Sex: Female

DRUGS (1)
  1. SUBOXONE [Suspect]
     Indication: PRODUCT USED FOR UNKNOWN INDICATION
     Dosage: DOSING DETAILS UNKNOWN
     Route: 065

REACTIONS (7)
  - TUNNEL VISION [None]
  - SWOLLEN TONGUE [None]
  - RESTLESS LEGS SYNDROME [None]
  - GAIT DISTURBANCE [None]
  - DRY THROAT [None]
  - WEIGHT DECREASED [None]
  - VOMITING [None]
